FAERS Safety Report 16938166 (Version 1)
Quarter: 2019Q4

REPORT INFORMATION
  Report Type: Spontaneous
  Country: AT (occurrence: AT)
  Receive Date: 20191018
  Receipt Date: 20191018
  Transmission Date: 20200122
  Serious: Yes (Hospitalization, Other)
  Sender: FDA-Public Use
  Company Number: AT-BRISTOL-MYERS SQUIBB COMPANY-BMS-2019-098768

PATIENT
  Age: 69 Year
  Sex: Male

DRUGS (2)
  1. THROMBO ASS [Concomitant]
     Active Substance: ASPIRIN
     Indication: ANTICOAGULANT THERAPY
     Dosage: UNK
     Route: 065
  2. NIVOLUMAB [Suspect]
     Active Substance: NIVOLUMAB
     Indication: LUNG ADENOCARCINOMA
     Dosage: UNK
     Route: 065
     Dates: start: 20171229, end: 20180307

REACTIONS (3)
  - Malignant neoplasm progression [Unknown]
  - Haemoptysis [Unknown]
  - Arthralgia [Unknown]

NARRATIVE: CASE EVENT DATE: 201906
